FAERS Safety Report 5003893-2 (Version None)
Quarter: 2006Q2

REPORT INFORMATION
  Report Type: 
  Country: None (occurrence: None)
  Receive Date: 20060515
  Receipt Date: 20040513
  Transmission Date: 20061013
  Serious: Yes (Hospitalization, Other)
  Sender: FDA-Public Use
  Company Number: 7967

PATIENT
  Age: 31 Year
  Sex: Female

DRUGS (6)
  1. DACARBAZINE [Suspect]
     Indication: HODGKIN'S DISEASE
     Dosage: 632 MG IV
     Route: 042
  2. BLEOMYCIN [Suspect]
     Indication: HODGKIN'S DISEASE
  3. TROPISETRON [Concomitant]
  4. ADRIAMYCIN PFS [Concomitant]
  5. VINBLASTINE SULFATE [Concomitant]
  6. DEXAMETHASONE TAB [Concomitant]

REACTIONS (8)
  - CHEST DISCOMFORT [None]
  - HYPERSENSITIVITY [None]
  - HYPOTENSION [None]
  - INFUSION RELATED REACTION [None]
  - PALLOR [None]
  - PALPITATIONS [None]
  - PARAESTHESIA ORAL [None]
  - THROAT TIGHTNESS [None]
